FAERS Safety Report 16363474 (Version 2)
Quarter: 2019Q3

REPORT INFORMATION
  Report Type: Report from Study
  Country: US (occurrence: US)
  Receive Date: 20190528
  Receipt Date: 20190712
  Transmission Date: 20191004
  Serious: Yes (Hospitalization)
  Sender: FDA-Public Use
  Company Number: US-ACTELION-A-NJ2019-190892

PATIENT
  Sex: Male

DRUGS (4)
  1. AMOXICILLIN. [Concomitant]
     Active Substance: AMOXICILLIN
  2. LAMISIL [Concomitant]
     Active Substance: TERBINAFINE HYDROCHLORIDE
  3. TRACLEER [Suspect]
     Active Substance: BOSENTAN
     Indication: PULMONARY ARTERIAL HYPERTENSION
     Dosage: 125 MG
     Route: 048
  4. LEVOFLOXACIN. [Concomitant]
     Active Substance: LEVOFLOXACIN

REACTIONS (1)
  - Gastrointestinal haemorrhage [Unknown]
